FAERS Safety Report 5224946-X (Version None)
Quarter: 2007Q1

REPORT INFORMATION
  Report Type: 
  Country: None (occurrence: None)
  Receive Date: 20070126
  Receipt Date: 20070115
  Transmission Date: 20070707
  Serious: Yes (Hospitalization)
  Sender: FDA-Public Use
  Company Number: HQWYE752818JAN07

PATIENT
  Age: 16 Year
  Sex: Female

DRUGS (1)
  1. EFFEXOR XR [Suspect]
     Dosage: OVERDOSE AMOUNT 562.5MG
     Dates: start: 20050301, end: 20050301

REACTIONS (3)
  - AGITATION [None]
  - MYDRIASIS [None]
  - OVERDOSE [None]
